FAERS Safety Report 11816579 (Version 2)
Quarter: 2016Q1

REPORT INFORMATION
  Report Type: Spontaneous
  Country: JP (occurrence: JP)
  Receive Date: 20151210
  Receipt Date: 20160119
  Transmission Date: 20160525
  Serious: Yes (Other)
  Sender: FDA-Public Use
  Company Number: JP-009507513-1502JPN003182

PATIENT
  Sex: Male

DRUGS (9)
  1. JANUVIA [Suspect]
     Active Substance: SITAGLIPTIN PHOSPHATE
     Indication: DIABETES PROPHYLAXIS
     Dosage: AFTER THE BREAKFAST
     Route: 048
     Dates: start: 2013
  2. MAINTATE [Concomitant]
     Active Substance: BISOPROLOL FUMARATE
     Dosage: FORMULATION: POR, DAILY DOSAGE UNKNOWN, TAKING AFTER BREAKFAST
     Route: 048
  3. DEPAS [Concomitant]
     Active Substance: ETIZOLAM
     Dosage: FORMULATION: POR, DAILY DOSAGE UNKNOWN
     Route: 048
  4. URIEF [Concomitant]
     Active Substance: SILODOSIN
     Indication: BENIGN PROSTATIC HYPERPLASIA
     Dosage: FORMULATION: POR, DAILY DOSAGE UNKNOWN
     Route: 048
  5. XARELTO [Concomitant]
     Active Substance: RIVAROXABAN
     Dosage: FORMULATION: POR, DAILY DOSAGE UNKNOWN, TAKING AFTER BREAKFAST
     Route: 048
  6. UNISIA [Concomitant]
     Active Substance: AMLODIPINE BESYLATE\CANDESARTAN CILEXETIL
     Indication: HYPERTENSION
     Dosage: FORMULATION: POR, DAILY DOSAGE UNKNOWN, TAKING AFTER BREAKFAST
     Route: 048
  7. TEPRENONE [Concomitant]
     Active Substance: TEPRENONE
     Indication: GASTRIC DISORDER
     Dosage: FORMULATION: POR, DAILY DOSAGE UNKNOWN
     Route: 048
  8. CRESTOR [Concomitant]
     Active Substance: ROSUVASTATIN CALCIUM
     Dosage: FORMULATION: POR, DAILY DOSAGE UNKNOWN, TAKING AFTER BREAKFAST
     Route: 048
  9. SUNRYTHM [Concomitant]
     Active Substance: PILSICAINIDE HYDROCHLORIDE
     Dosage: FORMULATION: POR, DAILY DOSAGE UNKNOWN
     Route: 048

REACTIONS (6)
  - Cerebral infarction [Unknown]
  - Hypoaesthesia [Unknown]
  - Constipation [Unknown]
  - Colon cancer [Unknown]
  - Dizziness [Unknown]
  - Cataract [Unknown]
